FAERS Safety Report 13410533 (Version 2)
Quarter: 2017Q4

REPORT INFORMATION
  Report Type: Spontaneous
  Country: US (occurrence: US)
  Receive Date: 20170406
  Receipt Date: 20171123
  Transmission Date: 20180320
  Serious: No
  Sender: FDA-Public Use
  Company Number: US-JNJFOC-20170300007

PATIENT
  Age: 15 Year
  Sex: Male

DRUGS (4)
  1. LEXAPRO [Suspect]
     Active Substance: ESCITALOPRAM OXALATE
     Indication: PRODUCT USED FOR UNKNOWN INDICATION
     Dosage: 10 MG AND THEN 20 MG
     Route: 065
  2. RISPERDAL [Suspect]
     Active Substance: RISPERIDONE
     Indication: ATTENTION DEFICIT/HYPERACTIVITY DISORDER
     Dosage: AT VARIABLE DOSES OF 0.25MG, 0.5 MG AND 1 MG
     Route: 048
     Dates: start: 20041228, end: 20050321
  3. RISPERDAL [Suspect]
     Active Substance: RISPERIDONE
     Indication: ANXIETY DISORDER
     Dosage: AT VARIABLE DOSES OF 0.25MG, 0.5 MG AND 1 MG
     Route: 048
     Dates: start: 20041228, end: 20050321
  4. RISPERDAL [Suspect]
     Active Substance: RISPERIDONE
     Indication: DEPRESSION
     Dosage: AT VARIABLE DOSES OF 0.25MG, 0.5 MG AND 1 MG
     Route: 048
     Dates: start: 20041228, end: 20050321

REACTIONS (6)
  - Fatigue [Unknown]
  - Off label use [Unknown]
  - Initial insomnia [Unknown]
  - Product use in unapproved indication [Unknown]
  - Gynaecomastia [Unknown]
  - Emotional disorder [Unknown]

NARRATIVE: CASE EVENT DATE: 20041228
